FAERS Safety Report 7182907-8 (Version None)
Quarter: 2010Q4

REPORT INFORMATION
  Report Type: 
  Country: None (occurrence: None)
  Receive Date: 20101209
  Receipt Date: 20101126
  Transmission Date: 20110411
  Serious: Yes (Other)
  Sender: FDA-Public Use
  Company Number: 018336

PATIENT
  Sex: Female
  Weight: 56 kg

DRUGS (8)
  1. VIMPAT [Suspect]
     Indication: EPILEPSY
     Dosage: (50 MG ORAL), (PROGRESSIVE INCREASE TILL 200 MG ORAL), (PROGRESSIVE DECREASE ORAL)
     Route: 048
     Dates: start: 20100101, end: 20100907
  2. VIMPAT [Suspect]
     Indication: EPILEPSY
     Dosage: (50 MG ORAL), (PROGRESSIVE INCREASE TILL 200 MG ORAL), (PROGRESSIVE DECREASE ORAL)
     Route: 048
     Dates: start: 20100907, end: 20101026
  3. VIMPAT [Suspect]
     Indication: EPILEPSY
     Dosage: (50 MG ORAL), (PROGRESSIVE INCREASE TILL 200 MG ORAL), (PROGRESSIVE DECREASE ORAL)
     Route: 048
     Dates: start: 20100505
  4. LAMICTAL [Concomitant]
  5. DEPAKENE [Concomitant]
  6. RIVOTRIL [Concomitant]
  7. URBANYL [Concomitant]
  8. TRIPHASIL-21 [Concomitant]

REACTIONS (3)
  - INTENTIONAL SELF-INJURY [None]
  - MENTAL DISORDER [None]
  - SUICIDE ATTEMPT [None]
